FAERS Safety Report 16208492 (Version 2)
Quarter: 2019Q3

REPORT INFORMATION
  Report Type: Spontaneous
  Country: FR (occurrence: FR)
  Receive Date: 20190417
  Receipt Date: 20190801
  Transmission Date: 20191004
  Serious: Yes (Other)
  Sender: FDA-Public Use
  Company Number: FR-PFIZER INC-2019157077

PATIENT
  Age: 64 Year
  Sex: Female
  Weight: 70 kg

DRUGS (11)
  1. EMEND [Suspect]
     Active Substance: APREPITANT
     Indication: PROPHYLAXIS OF NAUSEA AND VOMITING
     Dosage: 1 DF, 1X/DAY
     Route: 048
     Dates: start: 20190228, end: 20190302
  2. PARACETAMOL B. BRAUN [Suspect]
     Active Substance: ACETAMINOPHEN
     Indication: PAIN
     Dosage: 2 G, 1X/DAY
     Route: 041
     Dates: start: 20190302, end: 20190305
  3. HYDROCORTISONE. [Suspect]
     Active Substance: HYDROCORTISONE
     Indication: PREMEDICATION
     Dosage: 1 DF, 1X/DAY
     Route: 041
     Dates: start: 20190302, end: 20190303
  4. FLUDARABINE TEVA [Suspect]
     Active Substance: FLUDARABINE PHOSPHATE
     Indication: MYELOFIBROSIS
     Dosage: 52.5 MG, 1X/DAY
     Route: 041
     Dates: start: 20190227, end: 20190303
  5. THYMOGLOBULINE [Suspect]
     Active Substance: LAPINE T-LYMPHOCYTE IMMUNE GLOBULIN
     Indication: PROPHYLAXIS
     Dosage: 180 MG, 1X/DAY
     Route: 041
     Dates: start: 20190302, end: 20190303
  6. BUSULFAN FRESENIUS KABI [Suspect]
     Active Substance: BUSULFAN
     Indication: MYELOFIBROSIS
     Dosage: 228 MG, 1X/DAY
     Route: 041
     Dates: start: 20190227, end: 20190303
  7. PRIMPERAN [Suspect]
     Active Substance: METOCLOPRAMIDE HYDROCHLORIDE
     Indication: NAUSEA
     Dosage: 1 DF, 1X/DAY
     Route: 041
     Dates: start: 20190302, end: 20190307
  8. LEVOTHYROX [Concomitant]
     Active Substance: LEVOTHYROXINE
     Dosage: UNK
  9. ONDANSETRON ACCORD [Suspect]
     Active Substance: ONDANSETRON
     Indication: NAUSEA
     Dosage: 16 MG, 1X/DAY
     Route: 041
     Dates: start: 20190227, end: 20190304
  10. POLARAMINE [Suspect]
     Active Substance: DEXCHLORPHENIRAMINE MALEATE
     Indication: PREMEDICATION
     Dosage: 1 DF, 1X/DAY
     Route: 041
     Dates: start: 20190302, end: 20190303
  11. VORICONAZOLE ARROW [Suspect]
     Active Substance: VORICONAZOLE
     Dosage: 900 MG, 1X/DAY
     Route: 041
     Dates: start: 20190227

REACTIONS (2)
  - Hepatic failure [Recovered/Resolved]
  - Hepatocellular injury [Recovered/Resolved]

NARRATIVE: CASE EVENT DATE: 20190304
